FAERS Safety Report 6486646-8 (Version None)
Quarter: 2009Q4

REPORT INFORMATION
  Report Type: 
  Country: None (occurrence: None)
  Receive Date: 20091210
  Receipt Date: 20090801
  Transmission Date: 20100525
  Serious: No
  Sender: FDA-Public Use
  Company Number: US-AMGEN-KDL358417

PATIENT
  Sex: Female

DRUGS (5)
  1. ENBREL [Suspect]
     Indication: RHEUMATOID ARTHRITIS
     Route: 058
     Dates: start: 20070924
  2. PLAQUENIL [Concomitant]
     Dates: start: 19990101
  3. SULFASALAZINE [Concomitant]
     Dates: start: 20010101
  4. METHOTREXATE [Concomitant]
     Dates: start: 20020101
  5. TETANUS VACCINE [Concomitant]
     Dates: start: 20090722

REACTIONS (3)
  - ARTHROPOD BITE [None]
  - LOCAL SWELLING [None]
  - PRURITUS [None]
